FAERS Safety Report 18143719 (Version 1)
Quarter: 2020Q3

REPORT INFORMATION
  Report Type: Spontaneous
  Country: US (occurrence: US)
  Receive Date: 20200813
  Receipt Date: 20200813
  Transmission Date: 20201103
  Serious: No
  Sender: FDA-Public Use
  Company Number: US-009507513-2008USA004661

PATIENT
  Age: 17 Year
  Weight: 74.6 kg

DRUGS (1)
  1. NOXAFIL [Suspect]
     Active Substance: POSACONAZOLE
     Indication: PROPHYLAXIS
     Dosage: 4.0 MG/KG/DAY, 300 MILLIGRAM
     Route: 042

REACTIONS (1)
  - Product use issue [Unknown]
